FAERS Safety Report 9235741 (Version 1)
Quarter: 2013Q2

REPORT INFORMATION
  Report Type: Spontaneous
  Country: BR (occurrence: BR)
  Receive Date: 20130417
  Receipt Date: 20130417
  Transmission Date: 20140414
  Serious: Yes (Hospitalization)
  Sender: FDA-Public Use
  Company Number: BR-JNJFOC-20130407017

PATIENT
  Age: 0 Year
  Sex: Female
  Weight: 7 kg

DRUGS (1)
  1. TYLENOL GOTAS [Suspect]
     Indication: INFLUENZA
     Route: 048
     Dates: start: 20130408, end: 20130408

REACTIONS (1)
  - Accidental overdose [Recovered/Resolved]
